FAERS Safety Report 8157317-7 (Version None)
Quarter: 2012Q1

REPORT INFORMATION
  Report Type: 
  Country: None (occurrence: None)
  Receive Date: 20120222
  Receipt Date: 20120207
  Transmission Date: 20120608
  Serious: Yes (Other)
  Sender: FDA-Public Use
  Company Number: FR-TEVA-323680USA

PATIENT
  Sex: Female
  Weight: 88 kg

DRUGS (10)
  1. ZOPICLONE [Concomitant]
     Dates: start: 20050101
  2. TREANDA [Suspect]
     Dosage: 8.4667 MILLIGRAM;
     Route: 042
     Dates: start: 20111114
  3. OLMESARTAN MEDOXOMIL [Concomitant]
     Dates: start: 20100101
  4. RITUXIMAB [Suspect]
     Dosage: 22.6667 MILLIGRAM;
     Dates: start: 20111114
  5. OXAZEPAM [Concomitant]
     Dates: start: 20050101
  6. BACTRIM [Concomitant]
     Dates: start: 20111114
  7. ASPIRIN [Concomitant]
  8. OMEPRAZOLE [Concomitant]
     Dates: start: 20111114
  9. VALACICLOVIR [Concomitant]
     Dates: start: 20111114
  10. NULYTELY [Concomitant]
     Dates: start: 20010101

REACTIONS (1)
  - BRONCHITIS [None]
